FAERS Safety Report 5281139-8 (Version None)
Quarter: 2007Q1

REPORT INFORMATION
  Report Type: 
  Country: None (occurrence: None)
  Receive Date: 20070323
  Receipt Date: 20070310
  Transmission Date: 20070707
  Serious: Yes (Other)
  Sender: FDA-Public Use
  Company Number: 2006S1011650

PATIENT
  Age: 7 Year
  Sex: Female

DRUGS (9)
  1. MERCAPTAMINE BITARTRATE (MERCAPTAMINE BITARTRATE) (50 MG) [Suspect]
     Indication: CYSTINOSIS
     Dosage: SEE IMAGE
     Route: 048
     Dates: start: 20060921, end: 20061022
  2. MERCAPTAMINE BITARTRATE (MERCAPTAMINE BITARTRATE) (50 MG) [Suspect]
     Indication: CYSTINOSIS
     Dosage: SEE IMAGE
     Route: 048
     Dates: start: 20061023, end: 20061122
  3. EPOGEN [Concomitant]
  4. CALCIUM CARBONATE [Concomitant]
  5. POTASSIUM CHLORIDE [Concomitant]
  6. SPIRONOLACTONE [Concomitant]
  7. FERROUS SULFATE [Concomitant]
  8. MERCAPTAMINE [Concomitant]
  9. ALFACALCIDOL [Concomitant]

REACTIONS (5)
  - ABDOMINAL PAIN [None]
  - CONDITION AGGRAVATED [None]
  - DIALYSIS [None]
  - LETHARGY [None]
  - RENAL FAILURE [None]
